FAERS Safety Report 17165529 (Version 2)
Quarter: 2019Q4

REPORT INFORMATION
  Report Type: Spontaneous
  Country: US (occurrence: US)
  Receive Date: 20191217
  Receipt Date: 20191219
  Transmission Date: 20200122
  Serious: Yes (Other)
  Sender: FDA-Public Use
  Company Number: US-PFIZER INC-2017016049

PATIENT
  Age: 68 Year
  Sex: Female
  Weight: 79 kg

DRUGS (2)
  1. METOPROLOL. [Concomitant]
     Active Substance: METOPROLOL
     Indication: HYPERTENSION
     Dosage: UNK
  2. IBRANCE [Suspect]
     Active Substance: PALBOCICLIB
     Indication: BREAST CANCER METASTATIC
     Dosage: 125 MG, CYCLIC (ON DAYS 1-21 OF A 28 DAY CYCLE)
     Route: 048
     Dates: start: 2016

REACTIONS (3)
  - Spinal compression fracture [Unknown]
  - Product physical issue [Unknown]
  - Poor quality product administered [Unknown]
